FAERS Safety Report 7108668-6 (Version None)
Quarter: 2010Q4

REPORT INFORMATION
  Report Type: 
  Country: None (occurrence: None)
  Receive Date: 20101115
  Receipt Date: 20101115
  Transmission Date: 20110411
  Serious: Yes (Disabling, Other)
  Sender: FDA-Public Use
  Company Number: None

PATIENT
  Sex: Female
  Weight: 65.7716 kg

DRUGS (1)
  1. VENLAFAXINE [Suspect]
     Indication: SOCIAL PHOBIA
     Dosage: 75MG 1X DAY PO; 150MG 1X DAY PO
     Route: 048

REACTIONS (3)
  - DEPENDENCE [None]
  - DRUG WITHDRAWAL SYNDROME [None]
  - FEELING ABNORMAL [None]
